FAERS Safety Report 20786268 (Version 1)
Quarter: 2022Q2

REPORT INFORMATION
  Report Type: Spontaneous
  Country: US (occurrence: None)
  Receive Date: 20220504
  Receipt Date: 20220504
  Transmission Date: 20220720
  Serious: No
  Sender: FDA-Public Use
  Company Number: US-ROCHE-3020802

PATIENT
  Sex: Male

DRUGS (1)
  1. OCREVUS [Suspect]
     Active Substance: OCRELIZUMAB
     Indication: Rhabdomyosarcoma
     Route: 042
     Dates: start: 201710

REACTIONS (2)
  - Insomnia [Not Recovered/Not Resolved]
  - Speech disorder [Not Recovered/Not Resolved]
